FAERS Safety Report 21289840 (Version 1)
Quarter: 2022Q3

REPORT INFORMATION
  Report Type: Spontaneous
  Country: SI (occurrence: SI)
  Receive Date: 20220902
  Receipt Date: 20220902
  Transmission Date: 20221027
  Serious: Yes (Other)
  Sender: FDA-Public Use
  Company Number: SI-NOVARTISPH-NVSC2022SI194777

PATIENT
  Age: 50 Year
  Sex: Female

DRUGS (1)
  1. FINGOLIMOD [Suspect]
     Active Substance: FINGOLIMOD
     Indication: Product used for unknown indication
     Dosage: UNK
     Route: 065
     Dates: start: 2014

REACTIONS (10)
  - Secondary progressive multiple sclerosis [Unknown]
  - Hemiparesis [Unknown]
  - Quadriparesis [Unknown]
  - Pain [Unknown]
  - Amblyopia [Unknown]
  - Micturition urgency [Unknown]
  - Incontinence [Unknown]
  - Fatigue [Unknown]
  - Dyskinesia [Unknown]
  - Expanded disability status scale score increased [Unknown]
